FAERS Safety Report 6204577-5 (Version None)
Quarter: 2009Q2

REPORT INFORMATION
  Report Type: 
  Country: None (occurrence: None)
  Receive Date: 20090527
  Receipt Date: 20090515
  Transmission Date: 20091009
  Serious: Yes (Hospitalization)
  Sender: FDA-Public Use
  Company Number: US-PFIZER INC-2009213456

PATIENT
  Sex: Male
  Weight: 86.168 kg

DRUGS (11)
  1. SUTENT [Suspect]
     Indication: RENAL CELL CARCINOMA
     Dosage: 50 MG (1 PILL), 1X/DAY
     Route: 048
     Dates: start: 20090408
  2. TARCEVA [Suspect]
     Indication: RENAL CELL CARCINOMA
     Dosage: 150 MG (1 PILL), 1X/DAY
     Route: 048
     Dates: start: 20090408
  3. VICODIN [Concomitant]
     Dosage: 5-500 TABS
     Route: 048
     Dates: start: 20090306
  4. DOCUSATE SODIUM [Concomitant]
     Dosage: 100 MG, TABS
     Route: 048
     Dates: start: 20090306
  5. SALBUTAMOL [Concomitant]
     Dosage: 108 (90 BASE)
     Dates: start: 20090306
  6. ADVAIR DISKUS 100/50 [Concomitant]
     Dosage: 250-50 GCG/DOSE
     Dates: start: 20090306
  7. SIMVASTATIN [Concomitant]
     Dosage: 20 MG, UNK
     Route: 048
     Dates: start: 20090306
  8. SENNA [Concomitant]
     Dosage: 8-6 MG, UNK
     Route: 048
     Dates: start: 20090306
  9. TAMSULOSIN [Concomitant]
     Dosage: 0.4 MG, UNK
     Dates: start: 20090306
  10. SUDAFED 12 HOUR [Concomitant]
     Dosage: UNK
     Dates: start: 20090306
  11. OXYCODONE HYDROCHLORIDE [Concomitant]
     Dosage: 5 MG, TABS
     Route: 048
     Dates: start: 20090331

REACTIONS (2)
  - PERICARDIAL EFFUSION [None]
  - PLEURAL EFFUSION [None]
